FAERS Safety Report 11413691 (Version 1)
Quarter: 2015Q3

REPORT INFORMATION
  Report Type: Spontaneous
  Country: US (occurrence: US)
  Receive Date: 20150824
  Receipt Date: 20150824
  Transmission Date: 20151125
  Serious: Yes (Other)
  Sender: FDA-Public Use
  Company Number: US-PFIZER INC-2015276988

PATIENT
  Age: 68 Year
  Sex: Male
  Weight: 91 kg

DRUGS (2)
  1. XANAX [Suspect]
     Active Substance: ALPRAZOLAM
     Indication: PANIC ATTACK
     Dosage: 1 MG, UNK
     Dates: start: 1996
  2. VENLAFAXINE HCL [Suspect]
     Active Substance: VENLAFAXINE HYDROCHLORIDE
     Indication: PANIC ATTACK
     Dosage: 75 MG, UNK

REACTIONS (1)
  - Drug dependence [Unknown]
